FAERS Safety Report 4869693-9 (Version None)
Quarter: 2005Q4

REPORT INFORMATION
  Report Type: 
  Country: None (occurrence: None)
  Receive Date: 20051223
  Receipt Date: 20051214
  Transmission Date: 20060501
  Serious: Yes (Hospitalization, Other)
  Sender: FDA-Public Use
  Company Number: HQWYE640318NOV05

PATIENT
  Age: 75 Year
  Sex: Female

DRUGS (5)
  1. CORDARONE [Suspect]
     Dosage: 200 MG 1X PER 1 DAY
     Route: 048
     Dates: start: 20051003, end: 20051016
  2. PROPRANOLOL HYDROCHLORIDE [Suspect]
     Dosage: 160 MG 1X PER 1 DAY
     Route: 048
     Dates: start: 20051012, end: 20051018
  3. VANCOMYCIN [Suspect]
     Dosage: 2 G 1X PER 1 DAY
     Dates: start: 20051003, end: 20051018
  4. LOVENOX [Concomitant]
  5. LEVOTHYROXINE SODIUM [Concomitant]

REACTIONS (6)
  - ANTINUCLEAR ANTIBODY POSITIVE [None]
  - BACTERAEMIA [None]
  - DISEASE RECURRENCE [None]
  - IMMUNOLOGY TEST ABNORMAL [None]
  - PNEUMONIA KLEBSIELLA [None]
  - THROMBOCYTOPENIC PURPURA [None]
